FAERS Safety Report 5276651-1 (Version None)
Quarter: 2007Q1

REPORT INFORMATION
  Report Type: 
  Country: None (occurrence: None)
  Receive Date: 20070327
  Receipt Date: 20070319
  Transmission Date: 20070707
  Serious: Yes (Hospitalization, Other)
  Sender: FDA-Public Use
  Company Number: US-BRISTOL-MYERS SQUIBB COMPANY-13616776

PATIENT
  Age: 52 Year
  Sex: Female

DRUGS (12)
  1. ERBITUX [Suspect]
     Indication: NON-SMALL CELL LUNG CANCER
     Route: 042
     Dates: start: 20051006, end: 20051006
  2. CARBOPLATIN [Suspect]
     Indication: NON-SMALL CELL LUNG CANCER
     Route: 042
     Dates: start: 20051006, end: 20051006
  3. TAXOL [Suspect]
     Indication: NON-SMALL CELL LUNG CANCER
     Route: 042
     Dates: start: 20051006, end: 20051006
  4. DILAUDID [Concomitant]
     Dates: start: 20051019
  5. LEXAPRO [Concomitant]
     Dates: start: 20051019
  6. COUMADIN [Concomitant]
     Dates: start: 20051027, end: 20051106
  7. ZANTAC [Concomitant]
     Dates: start: 20050923
  8. ESTROGENS SOL/INJ [Concomitant]
     Dates: end: 20051106
  9. BACLOFEN [Concomitant]
  10. AMBIEN [Concomitant]
     Dates: start: 20051013
  11. COMPAZINE [Concomitant]
     Dates: end: 20051106
  12. ZOFRAN [Concomitant]

REACTIONS (2)
  - DEEP VEIN THROMBOSIS [None]
  - HYPERSENSITIVITY [None]
